FAERS Safety Report 23382040 (Version 1)
Quarter: 2024Q1

REPORT INFORMATION
  Report Type: Spontaneous
  Country: US (occurrence: None)
  Receive Date: 20240108
  Receipt Date: 20240108
  Transmission Date: 20240410
  Serious: No
  Sender: FDA-Public Use
  Company Number: None

PATIENT
  Age: 57 Year
  Sex: Female

DRUGS (1)
  1. DOXORUBICIN [Suspect]
     Active Substance: DOXORUBICIN
     Indication: Ovarian cancer
     Dosage: FREQUENCY : ONCE;?
     Route: 041
     Dates: start: 20220412, end: 20220412

REACTIONS (7)
  - Blood pressure decreased [None]
  - Heart rate increased [None]
  - Feeling abnormal [None]
  - Muscle twitching [None]
  - Unresponsive to stimuli [None]
  - Renal replacement therapy [None]
  - Infusion related reaction [None]
